APPROVED DRUG PRODUCT: TRETINOIN MICROSPHERE
Active Ingredient: TRETINOIN
Strength: 0.08%
Dosage Form/Route: GEL;TOPICAL
Application: A215609 | Product #001 | TE Code: AB
Applicant: ENCUBE ETHICALS PRIVATE LTD
Approved: Aug 22, 2023 | RLD: No | RS: No | Type: RX